FAERS Safety Report 15621342 (Version 1)
Quarter: 2018Q4

REPORT INFORMATION
  Report Type: Spontaneous
  Country: US (occurrence: US)
  Receive Date: 20181115
  Receipt Date: 20181115
  Transmission Date: 20190205
  Serious: Yes (Death, Life-Threatening, Hospitalization)
  Sender: FDA-Public Use
  Company Number: US-MYLANLABS-2018M1084753

PATIENT
  Age: 69 Year
  Sex: Female

DRUGS (9)
  1. FLUCONAZOLE. [Suspect]
     Active Substance: FLUCONAZOLE
     Indication: ENCEPHALITIS PROTOZOAL
     Dosage: ADMINISTERED IN ONE DOSE
     Route: 065
  2. AZITHROMYCIN ANHYDROUS. [Suspect]
     Active Substance: AZITHROMYCIN ANHYDROUS
     Indication: ENCEPHALITIS PROTOZOAL
     Dosage: ADMINISTERED IN ONE DOSE
     Route: 065
  3. PENTAMIDINE [Suspect]
     Active Substance: PENTAMIDINE
     Indication: ENCEPHALITIS PROTOZOAL
     Route: 065
  4. LEVETIRACETAM. [Concomitant]
     Active Substance: LEVETIRACETAM
     Indication: PRODUCT USED FOR UNKNOWN INDICATION
     Route: 042
  5. SULFADIAZINE. [Suspect]
     Active Substance: SULFADIAZINE
     Indication: ENCEPHALITIS PROTOZOAL
     Route: 065
  6. LORAZEPAM. [Concomitant]
     Active Substance: LORAZEPAM
     Indication: PRODUCT USED FOR UNKNOWN INDICATION
     Route: 065
  7. DEXAMETHASONE. [Suspect]
     Active Substance: DEXAMETHASONE
     Indication: GLIOMA
     Dosage: INITIAL DOSE NOT STATED; LATER THE DOSE WAS TAPERED
     Route: 065
  8. MILTEFOSINE [Suspect]
     Active Substance: MILTEFOSINE
     Indication: ENCEPHALITIS PROTOZOAL
     Dosage: THRICE DAILY
     Route: 065
  9. FLUCYTOSINE. [Suspect]
     Active Substance: FLUCYTOSINE
     Indication: ENCEPHALITIS PROTOZOAL
     Route: 065

REACTIONS (10)
  - Balamuthia infection [Fatal]
  - Central nervous system necrosis [Fatal]
  - Cerebral haemorrhage [Fatal]
  - Drug ineffective [Unknown]
  - Amoebic brain abscess [Fatal]
  - Mental status changes [Fatal]
  - Encephalitis protozoal [Fatal]
  - Hemiplegia [Fatal]
  - Disease progression [Fatal]
  - Coma [Fatal]
